FAERS Safety Report 17943638 (Version 3)
Quarter: 2022Q4

REPORT INFORMATION
  Report Type: Report from Study
  Country: CA (occurrence: CA)
  Receive Date: 20200625
  Receipt Date: 20221117
  Transmission Date: 20230112
  Serious: Yes (Other)
  Sender: FDA-Public Use
  Company Number: None

PATIENT
  Age: 47 Year
  Sex: Female

DRUGS (11)
  1. RAMIPRIL [Suspect]
     Active Substance: RAMIPRIL
     Indication: Product used for unknown indication
     Dosage: 1 EVERY 1 DAYS
     Route: 048
  2. ROSUVASTATIN CALCIUM [Suspect]
     Active Substance: ROSUVASTATIN CALCIUM
     Indication: Product used for unknown indication
     Dosage: 1 EVERY 1 DAYS
     Route: 048
  3. AFINITOR [Suspect]
     Active Substance: EVEROLIMUS
     Indication: Pancreatic neuroendocrine tumour metastatic
     Dosage: 1 EVERY 1 DAYS
     Route: 048
  4. SANDOSTATIN [Suspect]
     Active Substance: OCTREOTIDE ACETATE
     Indication: Pancreatic neuroendocrine tumour
     Dosage: 1 EVERY 1 MONTHS
     Route: 030
  5. SUNITINIB [Suspect]
     Active Substance: SUNITINIB
     Indication: Product used for unknown indication
     Route: 065
  6. ESOMEPRAZOLE MAGNESIUM [Concomitant]
     Active Substance: ESOMEPRAZOLE MAGNESIUM
     Route: 065
  7. SODIUM CITR. W/SODIUM LAURYL SULFOA [Concomitant]
     Route: 065
  8. ROSUVASTATIN CALCIUM [Concomitant]
     Active Substance: ROSUVASTATIN CALCIUM
     Indication: Blood cholesterol abnormal
     Dosage: 1 EVERY 1 DAYS
     Route: 048
  9. SYNTHROID [Concomitant]
     Active Substance: LEVOTHYROXINE SODIUM
     Route: 048
  10. VITAMIN D3 [Concomitant]
     Active Substance: CHOLECALCIFEROL
     Dosage: 1 EVERY 1 WEEKS
     Route: 048
  11. AFINITOR [Suspect]
     Active Substance: EVEROLIMUS
     Indication: Pancreatic neuroendocrine tumour metastatic
     Route: 048

REACTIONS (40)
  - Dysphagia [Recovered/Resolved]
  - Abdominal pain upper [Recovered/Resolved]
  - Anxiety [Recovered/Resolved]
  - Hypotension [Recovered/Resolved]
  - Blood pressure systolic increased [Recovered/Resolved]
  - Body temperature decreased [Recovered/Resolved]
  - Cough [Recovered/Resolved]
  - Diabetes mellitus [Recovered/Resolved]
  - Dry skin [Recovered/Resolved]
  - Dysphonia [Recovered/Resolved]
  - Dyspnoea [Recovered/Resolved]
  - Erythema [Recovered/Resolved]
  - Eyelid oedema [Recovered/Resolved]
  - Fatigue [Recovered/Resolved]
  - Hypothyroidism [Recovered/Resolved]
  - Hypoxia [Recovered/Resolved]
  - Ingrowing nail [Recovered/Resolved]
  - Injection site hypersensitivity [Recovered/Resolved]
  - Injection site induration [Recovered/Resolved]
  - Injection site mass [Recovered/Resolved]
  - Injection site pain [Recovered/Resolved]
  - Injection site warmth [Recovered/Resolved]
  - Lung disorder [Recovered/Resolved]
  - Lung infiltration [Recovered/Resolved]
  - Muscle contractions involuntary [Recovered/Resolved]
  - Musculoskeletal pain [Recovered/Resolved]
  - Nasal discharge discolouration [Recovered/Resolved]
  - Nasopharyngitis [Recovered/Resolved]
  - Needle issue [Unknown]
  - Neoplasm progression [Recovered/Resolved]
  - Nephritic syndrome [Recovered/Resolved]
  - Oropharyngeal pain [Recovered/Resolved]
  - Ovarian cyst [Recovered/Resolved]
  - Pancreatic neuroendocrine tumour [Recovered/Resolved]
  - Pneumonia [Recovered/Resolved]
  - Rhinorrhoea [Recovered/Resolved]
  - Skin discolouration [Recovered/Resolved]
  - Skin plaque [Recovered/Resolved]
  - Tenderness [Recovered/Resolved]
  - Blood pressure diastolic decreased [Recovered/Resolved]
